FAERS Safety Report 7677611-3 (Version None)
Quarter: 2011Q3

REPORT INFORMATION
  Report Type: 
  Country: None (occurrence: None)
  Receive Date: 20110811
  Receipt Date: 20110808
  Transmission Date: 20111222
  Serious: Yes (Death)
  Sender: FDA-Public Use
  Company Number: IL-SANOFI-AVENTIS-2011SA051150

PATIENT
  Age: 79 Year
  Sex: Male

DRUGS (11)
  1. ENOXAPARIN SODIUM [Suspect]
     Indication: THROMBOSIS PROPHYLAXIS
     Route: 058
     Dates: start: 20080128
  2. PLACEBO [Suspect]
     Indication: THROMBOSIS PROPHYLAXIS
     Route: 065
     Dates: start: 20080128
  3. POVIDONE IODINE [Concomitant]
     Dates: start: 20080215
  4. LANSOPRAZOLE [Concomitant]
     Dates: start: 20080127
  5. ALLOPURINOL [Concomitant]
  6. GENERAL NUTRIENTS [Concomitant]
     Dates: start: 20080215
  7. ACETAMINOPHEN [Concomitant]
     Dates: start: 20080215
  8. SERETIDE [Concomitant]
     Dates: start: 20080212
  9. ASPIRIN [Concomitant]
  10. SIMVASTATIN [Concomitant]
     Dates: start: 20070326
  11. AMLODIPINE [Concomitant]
     Dates: start: 20080201

REACTIONS (1)
  - SUDDEN DEATH [None]
